FAERS Safety Report 5585768-3 (Version None)
Quarter: 2007Q4

REPORT INFORMATION
  Report Type: 
  Country: None (occurrence: None)
  Receive Date: 20071203
  Receipt Date: 20070125
  Transmission Date: 20080405
  Serious: Yes (Other)
  Sender: FDA-Public Use
  Company Number: 2007007553

PATIENT

DRUGS (1)
  1. ZYVOX [Suspect]
     Indication: INFECTION

REACTIONS (2)
  - RASH [None]
  - STEVENS-JOHNSON SYNDROME [None]
